FAERS Safety Report 7607081-2 (Version None)
Quarter: 2011Q3

REPORT INFORMATION
  Report Type: 
  Country: None (occurrence: None)
  Receive Date: 20110713
  Receipt Date: 20110701
  Transmission Date: 20111222
  Serious: Yes (Death, Other)
  Sender: FDA-Public Use
  Company Number: KR-PFIZER INC-2011154220

PATIENT
  Age: 74 Year
  Sex: Male

DRUGS (7)
  1. LEUCOVORIN CALCIUM [Suspect]
     Indication: GASTRIC CANCER
     Dosage: 286 MG, UNK
     Route: 042
     Dates: start: 20110620, end: 20110628
  2. MEGESTROL ACETATE [Concomitant]
     Dosage: 20 ML, UNK
     Dates: start: 20110620, end: 20110627
  3. CAMPTOSAR [Suspect]
     Indication: GASTRIC CANCER
     Dosage: 257 MG, UNK
     Route: 042
     Dates: start: 20110620, end: 20110628
  4. LAFUTIDINE [Concomitant]
     Dosage: 20 MG, UNK
     Dates: start: 20110620, end: 20110627
  5. BEARSE [Concomitant]
     Dosage: UNK
     Dates: start: 20110620, end: 20110627
  6. DOMPERIDONE [Concomitant]
     Dosage: 30 MG, UNK
     Dates: start: 20110620, end: 20110627
  7. FLUOROURACIL [Suspect]
     Indication: GASTRIC CANCER
     Dosage: 1430 MG
     Route: 042
     Dates: start: 20110620, end: 20110628

REACTIONS (4)
  - DYSPNOEA [None]
  - SEPTIC SHOCK [None]
  - NEUTROPENIA [None]
  - BONE MARROW FAILURE [None]
